FAERS Safety Report 7449802-8 (Version None)
Quarter: 2011Q2

REPORT INFORMATION
  Report Type: 
  Country: None (occurrence: None)
  Receive Date: 20110421
  Receipt Date: 20110414
  Transmission Date: 20111010
  Serious: Yes (Death, Hospitalization, Other)
  Sender: FDA-Public Use
  Company Number: 2008US002612

PATIENT
  Age: 78 Year
  Sex: Female
  Weight: 55 kg

DRUGS (4)
  1. LOMOTIL (DIPHENOXYLATE  HYDROCHLORIDE) [Concomitant]
  2. PRAVACHOL [Concomitant]
  3. AMEVIVE [Suspect]
     Indication: PSORIASIS
     Dosage: 15 MG, WEEKLY, INTRAMUSCULAR
     Route: 030
     Dates: start: 20030909, end: 20030901
  4. BETAPACE [Concomitant]

REACTIONS (11)
  - BLADDER CANCER STAGE IV [None]
  - OBSTRUCTIVE UROPATHY [None]
  - HYDRONEPHROSIS [None]
  - HYPERKALAEMIA [None]
  - DEVICE DISLOCATION [None]
  - RENAL FAILURE ACUTE [None]
  - AGITATION [None]
  - URETERIC DILATATION [None]
  - PYELOCALIECTASIS [None]
  - DEPRESSED LEVEL OF CONSCIOUSNESS [None]
  - NEPHROLITHIASIS [None]
